FAERS Safety Report 9875314 (Version 2)
Quarter: 2014Q1

REPORT INFORMATION
  Report Type: Not Available
  Country: FR (occurrence: FR)
  Receive Date: 20140206
  Receipt Date: 20140328
  Transmission Date: 20141002
  Serious: Yes (Hospitalization)
  Sender: FDA-Public Use
  Company Number: FR-BEH-2014040511

PATIENT
  Age: 76 Year
  Sex: Male

DRUGS (1)
  1. PRIVIGEN [Suspect]
     Indication: NEUROPATHY PERIPHERAL
     Route: 042
     Dates: start: 20130113, end: 20130115

REACTIONS (3)
  - Rash [Recovered/Resolved]
  - Dry eye [Recovered/Resolved]
  - Oedema peripheral [Recovered/Resolved]
